FAERS Safety Report 7962304-5 (Version None)
Quarter: 2011Q4

REPORT INFORMATION
  Report Type: 
  Country: None (occurrence: None)
  Receive Date: 20111207
  Receipt Date: 20111206
  Transmission Date: 20120403
  Serious: Yes (Hospitalization)
  Sender: FDA-Public Use
  Company Number: PHHO2011NL018644

PATIENT
  Sex: Female
  Weight: 67 kg

DRUGS (4)
  1. BLINDED NO TREATMENT RECEIVED [Suspect]
     Indication: LYMPHANGIOLEIOMYOMATOSIS
     Dosage: DOUBLE BLINDED
     Route: 048
     Dates: start: 20110930
  2. AFINITOR [Suspect]
     Indication: LYMPHANGIOLEIOMYOMATOSIS
     Dosage: DOUBLE BLINDED
     Route: 048
     Dates: start: 20110930
  3. BLINDED PLACEBO [Suspect]
     Indication: LYMPHANGIOLEIOMYOMATOSIS
     Dosage: DOUBLE BLINDED
     Route: 048
     Dates: start: 20110930
  4. NEBIVOLOL HCL [Concomitant]
     Indication: HYPERTENSION
     Dosage: 7.5 MG, QD
     Dates: start: 20101209

REACTIONS (1)
  - PNEUMONIA [None]
